FAERS Safety Report 7659518-0 (Version None)
Quarter: 2011Q3

REPORT INFORMATION
  Report Type: 
  Country: None (occurrence: None)
  Receive Date: 20110805
  Receipt Date: 20110728
  Transmission Date: 20111222
  Serious: Yes (Death, Hospitalization)
  Sender: FDA-Public Use
  Company Number: JP-ACTELION-A-CH2010-40454

PATIENT
  Sex: Male
  Weight: 57 kg

DRUGS (16)
  1. TRACLEER [Suspect]
     Dosage: 62.5 MG, BID
     Route: 048
     Dates: start: 20100617, end: 20100721
  2. AZOSEMIDE [Concomitant]
  3. ALLOPURINOL [Concomitant]
  4. SARPOGRELATE HYDROCHLORIDE [Concomitant]
  5. MAGNESIUM OXIDE [Concomitant]
  6. LANSOPRAZOLE [Concomitant]
  7. TIOTROPIUM BROMIDE [Concomitant]
  8. CLOPIDOGREL [Suspect]
     Dosage: UNK , UNK
     Dates: start: 20100711, end: 20100724
  9. CILOSTAZOL [Concomitant]
  10. TAMSULOSIN HYDROCHLORIDE [Concomitant]
  11. TULOBUTEROL [Concomitant]
  12. OXYGEN [Concomitant]
  13. TRACLEER [Suspect]
     Indication: PULMONARY ARTERIAL HYPERTENSION
     Dosage: 125 MG, BID
     Route: 048
     Dates: start: 20100722, end: 20101214
  14. ASPIRIN [Concomitant]
  15. CARBOCISTEINE [Concomitant]
  16. WARFARIN SODIUM [Concomitant]

REACTIONS (20)
  - INFLAMMATION [None]
  - LUNG INFECTION [None]
  - ALANINE AMINOTRANSFERASE INCREASED [None]
  - BLOOD BILIRUBIN INCREASED [None]
  - BLOOD ALKALINE PHOSPHATASE INCREASED [None]
  - RESPIRATORY DISORDER [None]
  - ACUTE RESPIRATORY FAILURE [None]
  - GAMMA-GLUTAMYLTRANSFERASE INCREASED [None]
  - RESPIRATORY ARREST [None]
  - CARDIAC ARREST [None]
  - HEPATITIS [None]
  - ASPARTATE AMINOTRANSFERASE INCREASED [None]
  - PYREXIA [None]
  - PNEUMONIA [None]
  - HYPOPHAGIA [None]
  - DRUG INTERACTION [None]
  - TACHYPNOEA [None]
  - COUGH [None]
  - PRODUCTIVE COUGH [None]
  - CONCOMITANT DISEASE AGGRAVATED [None]
